FAERS Safety Report 24763605 (Version 1)
Quarter: 2024Q4

REPORT INFORMATION
  Report Type: Spontaneous
  Country: BR (occurrence: BR)
  Receive Date: 20241223
  Receipt Date: 20241223
  Transmission Date: 20250115
  Serious: Yes (Other)
  Sender: BIOGEN
  Company Number: BR-BIOGEN-2024BI01294350

PATIENT
  Age: 34 Year
  Sex: Female
  Weight: 56 kg

DRUGS (2)
  1. TECFIDERA [Suspect]
     Active Substance: DIMETHYL FUMARATE
     Indication: Multiple sclerosis
     Dosage: PATIENT DOSE WAS 240MG AND 120MG (NO FURTHER DETAILS CLARIFIED).
     Route: 050
     Dates: start: 20230526
  2. TECFIDERA [Suspect]
     Active Substance: DIMETHYL FUMARATE
     Dosage: PATIENT DOSE WAS 240MG AND 120MG (NO FURTHER DETAILS CLARIFIED).
     Route: 050
     Dates: end: 20230928

REACTIONS (3)
  - Burning sensation [Not Recovered/Not Resolved]
  - Hot flush [Recovered/Resolved]
  - Gastritis [Not Recovered/Not Resolved]

NARRATIVE: CASE EVENT DATE: 20230526
